FAERS Safety Report 8896266 (Version 1)
Quarter: 2012Q4

REPORT INFORMATION
  Report Type: Spontaneous
  Country: AU (occurrence: None)
  Receive Date: 20121031
  Receipt Date: 20121031
  Transmission Date: 20130627
  Serious: Yes (Other)
  Sender: FDA-Public Use
  Company Number: 2012SP003375

PATIENT
  Age: 51 Year
  Sex: Male

DRUGS (4)
  1. FLUOROURACIL [Suspect]
     Indication: RECTAL CANCER
     Route: 042
  2. OXALIPLATIN [Suspect]
     Indication: RECTAL CANCER
  3. LEUCOVORIN [Concomitant]
  4. CAPECITABINE [Concomitant]

REACTIONS (8)
  - Cardiac failure acute [None]
  - Vasoconstriction [None]
  - Coronary artery disease [None]
  - Acute coronary syndrome [None]
  - Coronary artery stenosis [None]
  - Coronary ostial stenosis [None]
  - Ventricular hypokinesia [None]
  - Toxicity to various agents [None]
